FAERS Safety Report 10356309 (Version 4)
Quarter: 2014Q4

REPORT INFORMATION
  Report Type: Spontaneous
  Country: CA (occurrence: CA)
  Receive Date: 20140801
  Receipt Date: 20141111
  Transmission Date: 20150528
  Serious: Yes (Hospitalization, Other)
  Sender: FDA-Public Use
  Company Number: CA-ROCHE-1443486

PATIENT
  Age: 64 Year
  Sex: Female

DRUGS (10)
  1. CETIRIZINE [Concomitant]
     Active Substance: CETIRIZINE HYDROCHLORIDE
     Route: 065
  2. BENADRYL [Concomitant]
     Active Substance: DIPHENHYDRAMINE HYDROCHLORIDE
  3. XOLAIR [Suspect]
     Active Substance: OMALIZUMAB
     Route: 058
     Dates: start: 20130918
  4. XOLAIR [Suspect]
     Active Substance: OMALIZUMAB
     Indication: ASTHMA
     Route: 058
     Dates: start: 20130904
  5. ALVESCO [Concomitant]
     Active Substance: CICLESONIDE
  6. VENTOLIN [Concomitant]
     Active Substance: ALBUTEROL SULFATE
  7. SPIRIVA [Concomitant]
     Active Substance: TIOTROPIUM BROMIDE MONOHYDRATE
  8. CETIRIZINE [Concomitant]
     Active Substance: CETIRIZINE HYDROCHLORIDE
     Route: 065
     Dates: start: 20130904
  9. PREDNISONE. [Concomitant]
     Active Substance: PREDNISONE
  10. SALMETEROL [Concomitant]
     Active Substance: SALMETEROL

REACTIONS (11)
  - Nasal pruritus [Unknown]
  - Hypersensitivity [Unknown]
  - Injection site pain [Unknown]
  - Mood swings [Unknown]
  - Agitation [Unknown]
  - Respiratory tract infection viral [Unknown]
  - Insomnia [Unknown]
  - Pruritus [Unknown]
  - Irritability [Unknown]
  - Photophobia [Unknown]
  - Restlessness [Unknown]

NARRATIVE: CASE EVENT DATE: 20130904
